FAERS Safety Report 26135681 (Version 1)
Quarter: 2025Q4

REPORT INFORMATION
  Report Type: Spontaneous
  Country: US (occurrence: None)
  Receive Date: 20251208
  Receipt Date: 20251208
  Transmission Date: 20260118
  Serious: Yes (Hospitalization)
  Sender: FDA-CTU
  Company Number: None

PATIENT
  Age: 72 Year
  Sex: Female

DRUGS (25)
  1. HUMIRA [Suspect]
     Active Substance: ADALIMUMAB
     Indication: Crohn^s disease
     Dosage: 40/0.4 MG/ML EVERY OTHER WEEK SUBCUTANEOUS
     Route: 058
     Dates: start: 20250626
  2. TIZANIDINE [Concomitant]
     Active Substance: TIZANIDINE
  3. BUDESONIDE [Concomitant]
     Active Substance: BUDESONIDE
  4. PROPRANOLOL [Concomitant]
     Active Substance: PROPRANOLOL HYDROCHLORIDE
  5. BREYNA [Concomitant]
     Active Substance: BUDESONIDE\FORMOTEROL FUMARATE
  6. FLUTICASONE 50MCG NASAL SP [Concomitant]
  7. BENZONATATE [Concomitant]
     Active Substance: BENZONATATE
  8. AZITHROMYCI N [Concomitant]
  9. AZITHROMYCI N [Concomitant]
  10. HYOSCYAMINE [Concomitant]
     Active Substance: HYOSCYAMINE
  11. DICYCLOMINE [Concomitant]
     Active Substance: DICYCLOMINE HYDROCHLORIDE
  12. METHOTREXATE [Concomitant]
     Active Substance: METHOTREXATE
  13. FOLIC ACID [Concomitant]
     Active Substance: FOLIC ACID
  14. ATORVASTATIN [Concomitant]
     Active Substance: ATORVASTATIN
  15. ADALIMU-FKJP [Concomitant]
  16. BIOTIN [Concomitant]
     Active Substance: BIOTIN
  17. MULTIVITAMIN ADULTS [Concomitant]
  18. PROBIOTIC 4X [Concomitant]
  19. PROLIA [Concomitant]
     Active Substance: DENOSUMAB
  20. TYLENOL [Concomitant]
     Active Substance: ACETAMINOPHEN
  21. VITAMIN D [Concomitant]
     Active Substance: VITAMIN D NOS
  22. BUT/ACETAMNOPHEN/CAFF [Concomitant]
  23. ONDANSETRON [Concomitant]
     Active Substance: ONDANSETRON
  24. FLUCONAZOLE [Concomitant]
     Active Substance: FLUCONAZOLE
  25. FLUOXETINE [Concomitant]
     Active Substance: FLUOXETINE HYDROCHLORIDE

REACTIONS (4)
  - Coccidioidomycosis [None]
  - Intracranial aneurysm [None]
  - Crohn^s disease [None]
  - Therapy cessation [None]
